FAERS Safety Report 24254251 (Version 1)
Quarter: 2024Q3

REPORT INFORMATION
  Report Type: Spontaneous
  Country: JP (occurrence: None)
  Receive Date: 20240827
  Receipt Date: 20240827
  Transmission Date: 20241017
  Serious: Yes (Other)
  Sender: ASTRAZENECA
  Company Number: 2024A190757

PATIENT
  Age: 54 Year
  Sex: Female

DRUGS (1)
  1. DAPAGLIFLOZIN [Suspect]
     Active Substance: DAPAGLIFLOZIN
     Dosage: DOSE UNKNOWN
     Route: 048
     Dates: start: 202212, end: 202303

REACTIONS (3)
  - Urinary tract infection [Unknown]
  - Dehydration [Unknown]
  - Chronic kidney disease [Unknown]
